FAERS Safety Report 10978983 (Version 2)
Quarter: 2015Q2

REPORT INFORMATION
  Report Type: Spontaneous
  Country: CH (occurrence: None)
  Receive Date: 20150331
  Receipt Date: 20150424
  Transmission Date: 20150821
  Serious: Yes (Hospitalization)
  Sender: FDA-Public Use
  Company Number: 20150119

PATIENT
  Age: 80 Year
  Sex: Male

DRUGS (1)
  1. VENOFER [Suspect]
     Active Substance: IRON SUCROSE
     Indication: IRON DEFICIENCY ANAEMIA
     Route: 041
     Dates: start: 20150206, end: 20150208

REACTIONS (7)
  - Pyrexia [None]
  - Pallor [None]
  - Skin discolouration [None]
  - Asthenia [None]
  - Chills [None]
  - Tremor [None]
  - Bacteraemia [None]

NARRATIVE: CASE EVENT DATE: 20150208
